FAERS Safety Report 9387660 (Version 2)
Quarter: 2013Q3

REPORT INFORMATION
  Report Type: Spontaneous
  Country: FR (occurrence: FR)
  Receive Date: 20130708
  Receipt Date: 20130723
  Transmission Date: 20140515
  Serious: Yes (Hospitalization, Other)
  Sender: FDA-Public Use
  Company Number: FR-PFIZER INC-2013196516

PATIENT
  Age: 71 Year
  Sex: Male

DRUGS (11)
  1. CAMPTO [Suspect]
     Indication: SMALL CELL LUNG CANCER
     Dosage: 1 DF, CYCLIC
     Route: 041
     Dates: start: 201207, end: 201210
  2. ETOPOSIDE [Suspect]
     Indication: SMALL CELL LUNG CANCER
     Dosage: 1 DF, 1X/DAY
     Route: 042
     Dates: start: 201112, end: 2012
  3. ENDOXAN [Suspect]
     Indication: SMALL CELL LUNG CANCER
     Dosage: 1 DF, CYCLIC
     Route: 041
     Dates: start: 201210, end: 20130131
  4. DOXORUBICIN ACCORD [Suspect]
     Indication: SMALL CELL LUNG CANCER
     Dosage: 1 DF, CYCLIC
     Route: 041
     Dates: start: 201210, end: 20130131
  5. CARBOPLATIN HOSPIRA [Suspect]
     Indication: SMALL CELL LUNG CANCER
     Dosage: 1 DF, CYCLIC
     Route: 041
     Dates: start: 201207, end: 201210
  6. CISPLATYL [Suspect]
     Indication: SMALL CELL LUNG CANCER
     Dosage: 1 DF, CYCLIC
     Route: 041
     Dates: start: 201112, end: 2012
  7. TRIATEC [Concomitant]
     Dosage: 1 DF, 1X/DAY
  8. ASPEGIC [Concomitant]
     Dosage: 1 DF, 1X/DAY
  9. TAHOR [Concomitant]
     Dosage: 1 DF, 1X/DAY
  10. INEXIUM [Concomitant]
     Dosage: 1 DF, 1X/DAY
  11. GLUCOPHAGE [Concomitant]
     Dosage: UNK

REACTIONS (3)
  - Progressive multifocal leukoencephalopathy [Recovering/Resolving]
  - Disease progression [Unknown]
  - Small cell lung cancer [Unknown]
